FAERS Safety Report 9617443 (Version 2)
Quarter: 2013Q4

REPORT INFORMATION
  Report Type: Spontaneous
  Country: JP (occurrence: JP)
  Receive Date: 20131011
  Receipt Date: 20131101
  Transmission Date: 20140711
  Serious: Yes (Hospitalization)
  Sender: FDA-Public Use
  Company Number: JP-EISAI INC-E2020-12981-SPO-JP

PATIENT
  Age: 87 Year
  Sex: Female

DRUGS (6)
  1. ARICEPT [Suspect]
     Indication: PRODUCT USED FOR UNKNOWN INDICATION
     Dosage: UNKNOWN
     Route: 048
     Dates: start: 20121217, end: 20130708
  2. LIPITOR [Concomitant]
     Indication: PRODUCT USED FOR UNKNOWN INDICATION
     Dosage: 10 MG/DAY
  3. TAKEPRON [Concomitant]
     Indication: PRODUCT USED FOR UNKNOWN INDICATION
     Dosage: 15 MG/DAY
  4. AMLODIN OD [Concomitant]
     Indication: PRODUCT USED FOR UNKNOWN INDICATION
     Dosage: 5 MG/DAY
     Dates: start: 20120903
  5. PAXIL CR [Concomitant]
     Indication: PRODUCT USED FOR UNKNOWN INDICATION
     Dosage: 12.5 MG/DAY
     Dates: start: 20121217
  6. MINZAIN [Concomitant]
     Indication: PRODUCT USED FOR UNKNOWN INDICATION
     Dosage: 0.25/DAY
     Dates: start: 20121225, end: 20130311

REACTIONS (8)
  - Panic disorder [Recovered/Resolved]
  - Tremor [Recovered/Resolved]
  - Thirst [Unknown]
  - Persecutory delusion [Recovered/Resolved]
  - Aggression [Not Recovered/Not Resolved]
  - Malaise [Recovered/Resolved]
  - Abdominal discomfort [Recovered/Resolved]
  - Insomnia [Recovering/Resolving]
